FAERS Safety Report 8348767-4 (Version None)
Quarter: 2012Q2

REPORT INFORMATION
  Report Type: 
  Country: None (occurrence: None)
  Receive Date: 20120510
  Receipt Date: 20120424
  Transmission Date: 20120825
  Serious: No
  Sender: FDA-Public Use
  Company Number: US-PFIZER INC-2012112088

PATIENT

DRUGS (2)
  1. EFFEXOR [Suspect]
     Dosage: 150 MG, UNK
  2. EFFEXOR [Suspect]
     Dosage: 375 MG, UNK

REACTIONS (2)
  - HEART RATE INCREASED [None]
  - HYPERTENSION [None]
